FAERS Safety Report 21353546 (Version 2)
Quarter: 2022Q4

REPORT INFORMATION
  Report Type: Spontaneous
  Country: US (occurrence: US)
  Receive Date: 20220920
  Receipt Date: 20221007
  Transmission Date: 20230113
  Serious: Yes (Other)
  Sender: FDA-Public Use
  Company Number: US-AUROBINDO-AUR-APL-2022-036926

PATIENT
  Age: 57 Year
  Sex: Female
  Weight: 102 kg

DRUGS (5)
  1. CLOZAPINE [Suspect]
     Active Substance: CLOZAPINE
     Indication: Product used for unknown indication
     Dosage: UNK,HALF DOSE
     Route: 048
  2. CLONIDINE [Concomitant]
     Active Substance: CLONIDINE
     Indication: Dementia
     Dosage: UNK
     Route: 065
  3. DEPAKOTE [Concomitant]
     Active Substance: DIVALPROEX SODIUM
     Indication: Dementia
     Dosage: 1 DOSAGE FORM, 3 TIMES A DAY
     Route: 065
  4. HALOPERIDOL DECANOATE [Concomitant]
     Active Substance: HALOPERIDOL DECANOATE
     Indication: Dementia
     Dosage: (EVERY MONTH)
     Route: 030
  5. LORAZEPAM [Concomitant]
     Active Substance: LORAZEPAM
     Indication: Dementia
     Dosage: TWICE A DAY
     Route: 065

REACTIONS (4)
  - Intellectual disability [Unknown]
  - Schizophrenia [Unknown]
  - Living in residential institution [Unknown]
  - COVID-19 [Unknown]
